FAERS Safety Report 11814899 (Version 1)
Quarter: 2015Q4

REPORT INFORMATION
  Report Type: Spontaneous
  Country: US (occurrence: US)
  Receive Date: 20151209
  Receipt Date: 20151209
  Transmission Date: 20160305
  Serious: No
  Sender: FDA-Public Use
  Company Number: US-SA-2015SA139064

PATIENT
  Age: 50 Year
  Sex: Male

DRUGS (6)
  1. TOUJEO [Suspect]
     Active Substance: INSULIN GLARGINE
     Indication: TYPE 1 DIABETES MELLITUS
     Dosage: INCREASED THE DOSE BY 5-7 UNITS EVERYDAY DOSE:42 UNIT(S)
     Route: 065
  2. TOUJEO [Suspect]
     Active Substance: INSULIN GLARGINE
     Indication: TYPE 1 DIABETES MELLITUS
     Dosage: DOSE:26 UNIT(S)
     Route: 065
     Dates: start: 20150906
  3. TOUJEO [Suspect]
     Active Substance: INSULIN GLARGINE
     Indication: TYPE 1 DIABETES MELLITUS
     Dosage: INCREASED THE DOSE BY 5-7 UNITS EVERYDAY
     Route: 065
  4. SOLOSTAR [Concomitant]
     Active Substance: DEVICE
     Dates: start: 20150906
  5. LANTUS SOLOSTAR [Concomitant]
     Active Substance: INSULIN GLARGINE
     Dosage: DOSE:80 UNIT(S)
  6. SOLOSTAR [Concomitant]
     Active Substance: DEVICE

REACTIONS (1)
  - Blood glucose increased [Unknown]
